FAERS Safety Report 7832186-0 (Version None)
Quarter: 2011Q4

REPORT INFORMATION
  Report Type: 
  Country: None (occurrence: None)
  Receive Date: 20111022
  Receipt Date: 20111007
  Transmission Date: 20120403
  Serious: Yes (Hospitalization, Other)
  Sender: FDA-Public Use
  Company Number: US-BAYER-2010-009098

PATIENT
  Age: 38 Year
  Sex: Female

DRUGS (8)
  1. SINGULAIR [Concomitant]
     Indication: HYPERSENSITIVITY
     Dosage: 10 MG, ONCE
     Route: 048
  2. PROTONIX [Concomitant]
  3. RHINOCORT [Concomitant]
  4. SINGULAIR [Concomitant]
     Indication: ASTHMA
  5. YASMIN [Suspect]
     Indication: PREMENSTRUAL SYNDROME
     Dosage: UNK
     Dates: start: 20070501, end: 20070629
  6. YAZ [Suspect]
     Indication: PREMENSTRUAL SYNDROME
     Dosage: UNK
     Dates: start: 20070101, end: 20070401
  7. PROTONIX [Concomitant]
     Indication: GASTROOESOPHAGEAL REFLUX DISEASE
  8. PROTONIX [Concomitant]

REACTIONS (6)
  - THROMBOSIS [None]
  - CHEST PAIN [None]
  - DYSPNOEA [None]
  - INJURY [None]
  - PULMONARY EMBOLISM [None]
  - PAIN [None]
